FAERS Safety Report 23735924 (Version 1)
Quarter: 2024Q2

REPORT INFORMATION
  Report Type: Spontaneous
  Country: CA (occurrence: CA)
  Receive Date: 20240412
  Receipt Date: 20240412
  Transmission Date: 20240715
  Serious: Yes (Hospitalization)
  Sender: FDA-Public Use
  Company Number: CA-CHEPLA-2024004373

PATIENT
  Age: 45 Year
  Sex: Male
  Weight: 79 kg

DRUGS (6)
  1. CAPECITABINE [Suspect]
     Active Substance: CAPECITABINE
     Indication: Colorectal cancer
     Dosage: 2000 MG 2 EVERY 1 DAYS?DAILY DOSE: 4000 MILLIGRAM
     Route: 048
  2. ACETAMINOPHEN [Concomitant]
     Active Substance: ACETAMINOPHEN
  3. DEXAMETHASONE [Concomitant]
     Active Substance: DEXAMETHASONE
     Dosage: DOSAGE FORM: LIQUID INTRA- ARTICULAR
  4. FERROUS SULFATE [Concomitant]
     Active Substance: FERROUS SULFATE
  5. LOPERAMIDE [Concomitant]
     Active Substance: LOPERAMIDE
  6. METOCLOPRAMIDE [Concomitant]
     Active Substance: METOCLOPRAMIDE

REACTIONS (4)
  - Body temperature abnormal [Recovered/Resolved]
  - Diarrhoea [Recovered/Resolved]
  - Gastrointestinal toxicity [Recovered/Resolved]
  - Vomiting [Recovered/Resolved]
